FAERS Safety Report 20030473 (Version 1)
Quarter: 2021Q4

REPORT INFORMATION
  Report Type: Spontaneous
  Country: US (occurrence: US)
  Receive Date: 20211103
  Receipt Date: 20211103
  Transmission Date: 20220303
  Serious: No
  Sender: FDA-Public Use
  Company Number: US-ELI_LILLY_AND_COMPANY-US202110001555

PATIENT
  Age: 69 Year
  Sex: Female

DRUGS (5)
  1. FORTEO [Suspect]
     Active Substance: TERIPARATIDE
     Indication: Product used for unknown indication
     Dosage: 20 UG, UNKNOWN
     Route: 058
     Dates: start: 2019
  2. FORTEO [Suspect]
     Active Substance: TERIPARATIDE
     Dosage: 20 UG, UNKNOWN
     Route: 058
  3. COVID-19 VACCINE [Concomitant]
     Indication: COVID-19 immunisation
     Dosage: SECOND DOSE
     Dates: start: 20210317
  4. COVID-19 VACCINE [Concomitant]
     Dosage: BOOSTER DOSE
     Dates: start: 20210913
  5. COVID-19 VACCINE [Concomitant]
     Dosage: UNK
     Dates: start: 20210924

REACTIONS (2)
  - COVID-19 [Not Recovered/Not Resolved]
  - Bradyphrenia [Unknown]

NARRATIVE: CASE EVENT DATE: 20210925
